APPROVED DRUG PRODUCT: RILUTEK
Active Ingredient: RILUZOLE
Strength: 50MG
Dosage Form/Route: TABLET;ORAL
Application: N020599 | Product #001
Applicant: COVIS PHARMA GMBH
Approved: Dec 12, 1995 | RLD: Yes | RS: No | Type: DISCN